FAERS Safety Report 9662073 (Version 1)
Quarter: 2013Q4

REPORT INFORMATION
  Report Type: Spontaneous
  Country: GB (occurrence: None)
  Receive Date: 20131030
  Receipt Date: 20131030
  Transmission Date: 20140711
  Serious: Yes (Other)
  Sender: FDA-Public Use
  Company Number: AUR-APL-2013-08980

PATIENT
  Age: 8 Year
  Sex: Male

DRUGS (3)
  1. LEVETIRACETAM [Suspect]
     Indication: FRONTAL LOBE EPILEPSY
     Dosage: UNKNOWN, STOPPED
  2. VALPROIC ACID [Suspect]
     Indication: FRONTAL LOBE EPILEPSY
     Dosage: UNKNOWN, STOPPED
  3. CARBAMAZEPINE [Suspect]
     Indication: FRONTAL LOBE EPILEPSY
     Dosage: UNKNOWN, STOPPED

REACTIONS (1)
  - Drug ineffective [None]
